FAERS Safety Report 15283129 (Version 1)
Quarter: 2018Q3

REPORT INFORMATION
  Report Type: Spontaneous
  Country: IN (occurrence: IN)
  Receive Date: 20180816
  Receipt Date: 20180816
  Transmission Date: 20181010
  Serious: Yes (Hospitalization)
  Sender: FDA-Public Use
  Company Number: IN-ACCORD-070710

PATIENT
  Age: 33 Year
  Sex: Female

DRUGS (4)
  1. OLANZAPINE. [Concomitant]
     Active Substance: OLANZAPINE
  2. ESCITALOPRAM [Suspect]
     Active Substance: ESCITALOPRAM OXALATE
     Indication: DECREASED APPETITE
  3. QUETIAPINE. [Suspect]
     Active Substance: QUETIAPINE
     Indication: DEPRESSIVE SYMPTOM
  4. LITHIUM. [Concomitant]
     Active Substance: LITHIUM

REACTIONS (7)
  - Abnormal behaviour [Recovered/Resolved]
  - Sedation complication [Unknown]
  - Inappropriate affect [Recovered/Resolved]
  - Aggression [Recovered/Resolved]
  - Drug intolerance [Unknown]
  - Insomnia [Recovered/Resolved]
  - Psychomotor hyperactivity [Recovered/Resolved]
